FAERS Safety Report 15180221 (Version 1)
Quarter: 2018Q3

REPORT INFORMATION
  Report Type: Spontaneous
  Country: GB (occurrence: GB)
  Receive Date: 20180723
  Receipt Date: 20180723
  Transmission Date: 20181010
  Serious: Yes (Hospitalization)
  Sender: FDA-Public Use
  Company Number: GB-FLAMINGO-001945

PATIENT
  Age: 85 Year
  Sex: Female

DRUGS (5)
  1. METRONIDAZOLE. [Suspect]
     Active Substance: METRONIDAZOLE
     Indication: PNEUMONIA
     Route: 048
     Dates: start: 20180107, end: 20180108
  2. AMOXICILLIN. [Suspect]
     Active Substance: AMOXICILLIN
     Indication: PNEUMONIA
     Route: 048
     Dates: start: 20180108, end: 20180114
  3. TEICOPLANIN [Suspect]
     Active Substance: TEICOPLANIN
     Indication: PNEUMONIA
     Route: 042
     Dates: start: 20180107
  4. CODEINE PHOSPHATE/PARACETAMOL [Concomitant]
     Dosage: 8/500MG 1?2 FOUR TIMES DAILY AS NECESSARY
  5. CLARITHROMYCIN. [Suspect]
     Active Substance: CLARITHROMYCIN
     Indication: PNEUMONIA
     Route: 048
     Dates: start: 20180108, end: 20180114

REACTIONS (5)
  - Hypersensitivity [Unknown]
  - Rash macular [Recovered/Resolved]
  - Pruritus [Unknown]
  - Erythema [Unknown]
  - Off label use [Unknown]

NARRATIVE: CASE EVENT DATE: 20180125
